FAERS Safety Report 8212830-9 (Version None)
Quarter: 2012Q1

REPORT INFORMATION
  Report Type: 
  Country: None (occurrence: None)
  Receive Date: 20120315
  Receipt Date: 20120307
  Transmission Date: 20120608
  Serious: Yes (Other)
  Sender: FDA-Public Use
  Company Number: PHHY2012GB019735

PATIENT
  Age: 31 Year
  Sex: Female

DRUGS (1)
  1. LABETALOL HCL [Suspect]
     Indication: PRE-ECLAMPSIA
     Dosage: 100 MG, BID
     Route: 048
     Dates: start: 20120216

REACTIONS (6)
  - LIVER INJURY [None]
  - PLATELET COUNT DECREASED [None]
  - PERICARDIAL EFFUSION [None]
  - MATERNAL EXPOSURE DURING PREGNANCY [None]
  - ABDOMINAL PAIN UPPER [None]
  - LIVER FUNCTION TEST ABNORMAL [None]
